FAERS Safety Report 9387061 (Version 1)
Quarter: 2013Q3

REPORT INFORMATION
  Report Type: Spontaneous
  Country: DK (occurrence: None)
  Receive Date: 20130702
  Receipt Date: 20130702
  Transmission Date: 20140515
  Serious: Yes (Other)
  Sender: FDA-Public Use
  Company Number: AUR-APL-2013-05400

PATIENT
  Sex: 0

DRUGS (6)
  1. CARVEDILOL (CARVEDILOL) [Suspect]
     Indication: HYPERTENSION
  2. DOXAZOSIN MESILATE [Suspect]
     Indication: HYPERTENSION
  3. LOSARTAN POTASSIUM (LOSARTAN POTASSIUM) [Suspect]
     Indication: HYPERTENSION
  4. SPIRONOLACTONE (SPIRONOLACTONE) [Suspect]
     Indication: HYPERTENSION
  5. BENDROFLUMETHIAZIDE (BENDROFLUMETHIAZIDE) [Suspect]
     Indication: HYPERTENSION
  6. FELODIPINE [Suspect]
     Indication: HYPERTENSION

REACTIONS (2)
  - Hypertension [None]
  - Drug resistance [None]
